FAERS Safety Report 9802020 (Version 2)
Quarter: 2014Q3

REPORT INFORMATION
  Report Type: Spontaneous
  Country: US (occurrence: US)
  Receive Date: 20140107
  Receipt Date: 20140808
  Transmission Date: 20150326
  Serious: Yes (Hospitalization, Other)
  Sender: FDA-Public Use
  Company Number: US-009507513-1401USA001994

PATIENT
  Sex: Female

DRUGS (1)
  1. NUVARING [Suspect]
     Active Substance: ETHINYL ESTRADIOL\ETONOGESTREL
     Indication: CONTRACEPTION
     Dosage: UNK
     Route: 067
     Dates: end: 20081222

REACTIONS (14)
  - Atrial septal defect [Unknown]
  - Head injury [Unknown]
  - Hypotension [Unknown]
  - Migraine [Not Recovered/Not Resolved]
  - Seasonal allergy [Unknown]
  - Peptic ulcer [Unknown]
  - Embolic stroke [Not Recovered/Not Resolved]
  - Gastritis [Unknown]
  - Tonsillectomy [Unknown]
  - Atrial septal defect repair [Unknown]
  - Cardiac aneurysm [Unknown]
  - Gastric ulcer [Recovered/Resolved]
  - Victim of spousal abuse [Unknown]
  - Back pain [Unknown]

NARRATIVE: CASE EVENT DATE: 2006
